FAERS Safety Report 26120269 (Version 1)
Quarter: 2025Q4

REPORT INFORMATION
  Report Type: Spontaneous
  Country: US (occurrence: US)
  Receive Date: 20251204
  Receipt Date: 20251204
  Transmission Date: 20260118
  Serious: No
  Sender: BOEHRINGER INGELHEIM
  Company Number: PA-BoehringerIngelheim-2025-BI-108052

PATIENT
  Age: 80 Year
  Sex: Female
  Weight: 108.4 kg

DRUGS (30)
  1. JARDIANCE [Suspect]
     Active Substance: EMPAGLIFLOZIN
     Indication: Type 2 diabetes mellitus
  2. Insulin glargine Solostar (Basaglar Kwikpen) [Concomitant]
     Indication: Product used for unknown indication
     Dosage: 12 UNITS
     Dates: end: 20250519
  3. Insulin glargine Solostar (Basaglar Kwikpen) [Concomitant]
     Dosage: INJECT 12 UNITS UNDER THE SKIN AT BEDTIME
  4. ASPIRIN [Concomitant]
     Active Substance: ASPIRIN
     Indication: Product used for unknown indication
  5. Carboxymethylcell-Glycerin PF [Concomitant]
     Indication: Product used for unknown indication
     Dosage: INSTILL 1 DROP IN BOTH EYES IN MORNING AND 1 DROP BEFORE BEDTIME
  6. Centrum Silver 50+Women [Concomitant]
     Indication: Product used for unknown indication
  7. CYANOCOBALAMIN [Concomitant]
     Active Substance: CYANOCOBALAMIN
     Indication: Product used for unknown indication
     Dosage: INJECT 1 ML INTO LARGE MUSCLE EVERY 30 DAYS, INJECT 1 ML MONTHLY AS DIRECTED
  8. CYANOCOBALAMIN [Concomitant]
     Active Substance: CYANOCOBALAMIN
  9. ETODOLAC [Concomitant]
     Active Substance: ETODOLAC
     Indication: Pain
  10. FERROUS SULFATE [Concomitant]
     Active Substance: FERROUS SULFATE
     Indication: Iron deficiency anaemia
  11. Insulin lispro (Humalog kwikpen) [Concomitant]
     Indication: Type 2 diabetes mellitus
     Dosage: 7 UNITS WITH SMALL MEALS, 10 UNITS WITH MEDIUM MEALS, 13 UNITS WITH LARGE MEALS, PLUS CORRECTION 1:50 OVER 150 MG/DL AT MEALS
  12. Insulin lispro (Humalog kwikpen) [Concomitant]
     Dosage: INJECT UNDER SKIN CORRECTION ONLY BEFORE AM MEAL, 18 UNITS BEFORE LUNCH, 18 UNITS BEFORE PM MEAL PLUS CORRECTION 1?50 OVER 150 MG/DL AT MEALS
  13. HYDROCHLOROTHIAZIDE [Concomitant]
     Active Substance: HYDROCHLOROTHIAZIDE
     Indication: Hypertension
  14. LATANOPROST [Concomitant]
     Active Substance: LATANOPROST
     Indication: Borderline glaucoma
     Dosage: INSTILL 1 DROP IN BOTH EYES
  15. LEVOTHYROXINE SODIUM [Concomitant]
     Active Substance: LEVOTHYROXINE SODIUM
     Indication: Hypothyroidism
  16. ATIVAN [Concomitant]
     Active Substance: LORAZEPAM
     Indication: Anxiety
  17. ATIVAN [Concomitant]
     Active Substance: LORAZEPAM
     Indication: Insomnia
  18. Metformin HCL (Glucophage) [Concomitant]
     Indication: Type 2 diabetes mellitus
  19. Metoprolol Tartrate (Lopressor) [Concomitant]
     Indication: Product used for unknown indication
  20. Naproxen (NAPROSYN) [Concomitant]
     Indication: Pain
  21. NPH INSULIN [Concomitant]
     Active Substance: INSULIN BEEF
     Indication: Type 2 diabetes mellitus
  22. OZEMPIC [Concomitant]
     Active Substance: SEMAGLUTIDE
     Indication: Type 2 diabetes mellitus
  23. ZOCOR [Concomitant]
     Active Substance: SIMVASTATIN
     Indication: Dyslipidaemia
  24. Spironolactone (Aldactone) [Concomitant]
     Indication: Product used for unknown indication
  25. TYLENOL EXTRA STRENGTH [Concomitant]
     Active Substance: ACETAMINOPHEN
     Indication: Pain
     Dosage: EVERY 4-6 HOURS AS NEEDED FOR PAIN OR FEVER
  26. TYLENOL EXTRA STRENGTH [Concomitant]
     Active Substance: ACETAMINOPHEN
     Indication: Pyrexia
  27. VENTOLIN HFA [Concomitant]
     Active Substance: ALBUTEROL SULFATE
     Indication: Wheezing
     Dosage: INHALE 2 PUFFS
  28. THIAMINE HYDROCHLORIDE [Concomitant]
     Active Substance: THIAMINE HYDROCHLORIDE
     Indication: Product used for unknown indication
  29. VITAMIN D [Concomitant]
     Active Substance: VITAMIN D NOS
     Indication: Product used for unknown indication
  30. INSULIN NOS [Concomitant]
     Active Substance: INSULIN NOS
     Indication: Product used for unknown indication
     Dosage: 31GX5/16? 0.5ML MISC

REACTIONS (1)
  - Fungal infection [Unknown]
